FAERS Safety Report 8996526 (Version 1)
Quarter: 2013Q1

REPORT INFORMATION
  Report Type: Spontaneous
  Country: US (occurrence: US)
  Receive Date: 20130104
  Receipt Date: 20130104
  Transmission Date: 20140127
  Serious: No
  Sender: FDA-Public Use
  Company Number: US-PFIZER INC-2012333497

PATIENT
  Age: 59 Year
  Sex: Female

DRUGS (16)
  1. CORTEF [Suspect]
     Dosage: UNK
  2. VIIBRYD [Suspect]
     Indication: MAJOR DEPRESSION
     Dosage: 10 MG ONCE DAILY
     Route: 048
     Dates: start: 20121119, end: 20121210
  3. VIIBRYD [Suspect]
     Dosage: 20 MG ONCE DAILY
     Route: 048
     Dates: start: 20121211
  4. DEPLIN [Concomitant]
     Dosage: 15MG ONCE DAILY
     Route: 048
  5. GABAPENTIN [Concomitant]
     Dosage: 400 MG, (3 IN 1 D)
     Route: 048
  6. CLONAZEPAM [Concomitant]
     Dosage: 2-3 MG AT BEDTIME
     Route: 048
  7. SOMA [Concomitant]
     Dosage: 350 MG, 3X/DAY
     Route: 048
  8. LORAZEPAM [Concomitant]
     Dosage: 1 MG, AS NEEDED
     Route: 048
  9. ZYRTEC [Concomitant]
     Dosage: 10 MG, 1X/DAY
     Route: 048
  10. FLONASE [Concomitant]
     Dosage: UNK
  11. CO-Q-10 [Concomitant]
     Dosage: 100 MG, 1X/DAY
     Route: 048
  12. VITAMIN D [Concomitant]
     Dosage: 1000 UNITS 1X/DAY (1000 UNITS, 1 IN 1 D)
     Route: 048
  13. SYNTHROID [Concomitant]
     Dosage: 100 UG, 1X/DAY
     Route: 048
  14. VITRON-C [Concomitant]
     Dosage: UNK
  15. FISH OIL [Concomitant]
     Dosage: UNK
  16. FENTANYL [Concomitant]
     Indication: PAIN
     Dosage: 25 UG, 1 IN 3 D
     Route: 062

REACTIONS (9)
  - Migraine [Not Recovered/Not Resolved]
  - Chills [Not Recovered/Not Resolved]
  - Nausea [Not Recovered/Not Resolved]
  - Dry mouth [Not Recovered/Not Resolved]
  - Photosensitivity reaction [Not Recovered/Not Resolved]
  - Fatigue [Not Recovered/Not Resolved]
  - Palpitations [Not Recovered/Not Resolved]
  - Hyperhidrosis [Not Recovered/Not Resolved]
  - Parosmia [Not Recovered/Not Resolved]
